FAERS Safety Report 7038648-0 (Version None)
Quarter: 2010Q4

REPORT INFORMATION
  Report Type: 
  Country: None (occurrence: None)
  Receive Date: 20101011
  Receipt Date: 20100930
  Transmission Date: 20110411
  Serious: Yes (Other)
  Sender: FDA-Public Use
  Company Number: US-PFIZER INC-2010113340

PATIENT
  Sex: Male
  Weight: 84.354 kg

DRUGS (1)
  1. TOVIAZ [Suspect]
     Indication: URINARY TRACT PAIN
     Dosage: ONCE A DAY
     Route: 048
     Dates: start: 20100601, end: 20100701

REACTIONS (2)
  - DRUG INEFFECTIVE [None]
  - DYSURIA [None]
